FAERS Safety Report 25913362 (Version 1)
Quarter: 2025Q4

REPORT INFORMATION
  Report Type: Spontaneous
  Country: US (occurrence: US)
  Receive Date: 20251013
  Receipt Date: 20251013
  Transmission Date: 20260118
  Serious: Yes (Other)
  Sender: NOVARTIS
  Company Number: US-002147023-NVSC2025US152429

PATIENT
  Age: 77 Year

DRUGS (1)
  1. NETSPOT [Suspect]
     Active Substance: GALLIUM OXODOTREOTIDE GA-68
     Indication: Imaging procedure
     Dosage: 4.8 ML (INJECTION)
     Route: 065

REACTIONS (2)
  - Hemiparesis [Unknown]
  - Dizziness [Unknown]

NARRATIVE: CASE EVENT DATE: 20250922
